FAERS Safety Report 4463336-4 (Version None)
Quarter: 2004Q3

REPORT INFORMATION
  Report Type: 
  Country: None (occurrence: None)
  Receive Date: 20040928
  Receipt Date: 20040914
  Transmission Date: 20050211
  Serious: Yes (Hospitalization)
  Sender: FDA-Public Use
  Company Number: 177030

PATIENT
  Age: 57 Year
  Sex: Male
  Weight: 83.9154 kg

DRUGS (5)
  1. AVONEX [Suspect]
     Indication: MULTIPLE SCLEROSIS
     Dosage: 30 MCG QW IM
     Route: 030
     Dates: start: 20030101, end: 20030701
  2. NEBULIZERS (NOS) [Concomitant]
  3. PROZAC [Concomitant]
  4. VALIUM [Concomitant]
  5. ENALAPRIL MALEATE [Concomitant]

REACTIONS (7)
  - AMNESIA [None]
  - COMA [None]
  - HALLUCINATION, VISUAL [None]
  - HYPERTENSION [None]
  - TRANSIENT ISCHAEMIC ATTACK [None]
  - TREATMENT NONCOMPLIANCE [None]
  - VISION BLURRED [None]
